FAERS Safety Report 5375915-0 (Version None)
Quarter: 2007Q3

REPORT INFORMATION
  Report Type: 
  Country: None (occurrence: None)
  Receive Date: 20070702
  Receipt Date: 20070618
  Transmission Date: 20080115
  Serious: Yes (Other)
  Sender: FDA-Public Use
  Company Number: US-JNJFOC-20070405021

PATIENT
  Sex: Female
  Weight: 89.81 kg

DRUGS (5)
  1. REMICADE [Suspect]
     Route: 042
  2. REMICADE [Suspect]
     Indication: RHEUMATOID ARTHRITIS
     Route: 042
  3. ZOCOR [Concomitant]
     Indication: BLOOD CHOLESTEROL INCREASED
     Route: 048
  4. POTASSIUM ACETATE [Concomitant]
     Indication: BLOOD POTASSIUM DECREASED
     Route: 048
  5. FOSINOPRIL SODIUM [Concomitant]
     Indication: BLOOD PRESSURE

REACTIONS (5)
  - BLOOD PRESSURE INCREASED [None]
  - DRY MOUTH [None]
  - HYPOAESTHESIA [None]
  - INFUSION RELATED REACTION [None]
  - PARAESTHESIA [None]
